FAERS Safety Report 5090830-8 (Version None)
Quarter: 2006Q3

REPORT INFORMATION
  Report Type: 
  Country: None (occurrence: None)
  Receive Date: 20060823
  Receipt Date: 20060810
  Transmission Date: 20061208
  Serious: Yes (Hospitalization)
  Sender: FDA-Public Use
  Company Number: ENTC2006-0228

PATIENT
  Age: 70 Year
  Sex: Male

DRUGS (10)
  1. STALEVO 100 [Suspect]
     Indication: ABNORMAL BEHAVIOUR
     Dosage: 100/25/200MG X 2DF ORAL; SEE IMAGE
     Route: 048
     Dates: start: 20060610, end: 20060612
  2. STALEVO 100 [Suspect]
     Indication: HALLUCINATION
     Dosage: 100/25/200MG X 2DF ORAL; SEE IMAGE
     Route: 048
     Dates: start: 20060610, end: 20060612
  3. STALEVO 100 [Suspect]
     Indication: PARKINSON'S DISEASE
     Dosage: 100/25/200MG X 2DF ORAL; SEE IMAGE
     Route: 048
     Dates: start: 20060610, end: 20060612
  4. STALEVO 100 [Suspect]
     Indication: ABNORMAL BEHAVIOUR
     Dosage: 100/25/200MG X 2DF ORAL; SEE IMAGE
     Route: 048
     Dates: start: 20060613, end: 20060616
  5. STALEVO 100 [Suspect]
     Indication: HALLUCINATION
     Dosage: 100/25/200MG X 2DF ORAL; SEE IMAGE
     Route: 048
     Dates: start: 20060613, end: 20060616
  6. STALEVO 100 [Suspect]
     Indication: PARKINSON'S DISEASE
     Dosage: 100/25/200MG X 2DF ORAL; SEE IMAGE
     Route: 048
     Dates: start: 20060613, end: 20060616
  7. STALEVO 100 [Suspect]
     Indication: ABNORMAL BEHAVIOUR
     Dosage: 100/25/200MG X 2DF ORAL; SEE IMAGE
     Route: 048
     Dates: start: 20060610, end: 20060616
  8. STALEVO 100 [Suspect]
     Indication: HALLUCINATION
     Dosage: 100/25/200MG X 2DF ORAL; SEE IMAGE
     Route: 048
     Dates: start: 20060610, end: 20060616
  9. STALEVO 100 [Suspect]
     Indication: PARKINSON'S DISEASE
     Dosage: 100/25/200MG X 2DF ORAL; SEE IMAGE
     Route: 048
     Dates: start: 20060610, end: 20060616
  10. MODOPAR [Concomitant]

REACTIONS (2)
  - ABNORMAL BEHAVIOUR [None]
  - HALLUCINATION [None]
